FAERS Safety Report 8816778 (Version 1)
Quarter: 2012Q4

REPORT INFORMATION
  Report Type: Spontaneous
  Country: US (occurrence: None)
  Receive Date: 20121001
  Receipt Date: 20121001
  Transmission Date: 20130627
  Serious: Yes (Death, Life-Threatening, Hospitalization)
  Sender: FDA-Public Use
  Company Number: UTC-023281

PATIENT
  Age: 73 Year
  Sex: Female
  Weight: 66.27 kg

DRUGS (4)
  1. REMODULIN [Suspect]
     Indication: PULMONARY HYPERTENSION SECONDARY
     Route: 041
     Dates: start: 201209, end: 201209
  2. REMODULIN [Suspect]
     Indication: CHRONIC PULMONARY HEART DISEASE
     Route: 041
     Dates: start: 201209, end: 201209
  3. REMODULIN (10 MILLIGRAM/MILLILITERS, INJECTION FOR INFUSION) (TREPROSTINIL SODIUM) [Suspect]
     Indication: PULMONARY HYPERTENSION SECONDARY
     Dosage: 116.28 ug/kg (0.08075 ug/kg, 1in 1 min)
     Route: 058
     Dates: start: 20120410, end: 201209
  4. REMODULIN (10 MILLIGRAM/MILLILITERS, INJECTION FOR INFUSION) (TREPROSTINIL SODIUM) [Suspect]
     Indication: CHRONIC PULMONARY HEART DISEASE
     Dosage: 116.28 ug/kg (0.08075 ug/kg, 1in 1 min)
     Route: 058
     Dates: start: 20120410, end: 201209

REACTIONS (2)
  - Pulmonary embolism [None]
  - Cardio-respiratory arrest [None]
